FAERS Safety Report 8138126-1 (Version None)
Quarter: 2012Q1

REPORT INFORMATION
  Report Type: 
  Country: None (occurrence: None)
  Receive Date: 20120215
  Receipt Date: 20120215
  Transmission Date: 20120608
  Serious: Yes (Other)
  Sender: FDA-Public Use
  Company Number: None

PATIENT
  Age: 42 Year
  Sex: Female
  Weight: 54.431 kg

DRUGS (1)
  1. ALDARA [Suspect]
     Indication: BASAL CELL CARCINOMA
     Dosage: ONE PACKET/DOSE
     Dates: start: 20111220, end: 20111224

REACTIONS (8)
  - FATIGUE [None]
  - HEADACHE [None]
  - OROPHARYNGEAL PAIN [None]
  - SWOLLEN TONGUE [None]
  - NECK PAIN [None]
  - BACK PAIN [None]
  - PULMONARY CONGESTION [None]
  - INFLUENZA [None]
